FAERS Safety Report 11717369 (Version 3)
Quarter: 2016Q2

REPORT INFORMATION
  Report Type: Report from Study
  Country: US (occurrence: US)
  Receive Date: 20151110
  Receipt Date: 20160413
  Transmission Date: 20160815
  Serious: No
  Sender: FDA-Public Use
  Company Number: US-AMGEN-USASP2015117584

PATIENT
  Age: 45 Year
  Sex: Female

DRUGS (2)
  1. ENBREL [Suspect]
     Active Substance: ETANERCEPT
     Indication: RHEUMATOID ARTHRITIS
     Dosage: 50 MG, 1 TIME PER WEEK
     Route: 065
     Dates: start: 2006
  2. ENBREL [Suspect]
     Active Substance: ETANERCEPT
     Dosage: UNK
     Route: 065

REACTIONS (6)
  - Incorrect product storage [Unknown]
  - Papilloma viral infection [Unknown]
  - Decreased immune responsiveness [Unknown]
  - Fungal infection [Not Recovered/Not Resolved]
  - Fatigue [Unknown]
  - Vaginitis bacterial [Unknown]

NARRATIVE: CASE EVENT DATE: 2015
